FAERS Safety Report 24408692 (Version 1)
Quarter: 2024Q4

REPORT INFORMATION
  Report Type: Spontaneous
  Country: US (occurrence: US)
  Receive Date: 20241007
  Receipt Date: 20241007
  Transmission Date: 20250115
  Serious: No
  Sender: RECKITT BENCKISER
  Company Number: US-Indivior Limited-INDV-145194-2024

PATIENT
  Sex: Male

DRUGS (4)
  1. SUBLOCADE [Suspect]
     Active Substance: BUPRENORPHINE
     Indication: Drug dependence
     Dosage: 100 MILLIGRAM, QMO
     Route: 065
  2. SUBLOCADE [Suspect]
     Active Substance: BUPRENORPHINE
  3. BUPRENORPHINE\NALOXONE [Suspect]
     Active Substance: BUPRENORPHINE\NALOXONE
     Indication: Drug dependence
     Dosage: 1 MILLIGRAM, QD
  4. BUPRENORPHINE\NALOXONE [Suspect]
     Active Substance: BUPRENORPHINE\NALOXONE
     Dosage: UNK (PART OF FILM)

REACTIONS (6)
  - Off label use [Not Recovered/Not Resolved]
  - Inappropriate schedule of product discontinuation [Not Recovered/Not Resolved]
  - Drug intolerance [Unknown]
  - Intentional underdose [Recovered/Resolved]
  - Sedation [Recovered/Resolved]
  - Wrong technique in product usage process [Recovered/Resolved]
